FAERS Safety Report 8077653-2 (Version None)
Quarter: 2012Q1

REPORT INFORMATION
  Report Type: 
  Country: None (occurrence: None)
  Receive Date: 20120127
  Receipt Date: 20120118
  Transmission Date: 20120608
  Serious: Yes (Other)
  Sender: FDA-Public Use
  Company Number: PHHY2012AU006087

PATIENT
  Age: 61 Year
  Sex: Female

DRUGS (7)
  1. VALDOXAN [Interacting]
     Dosage: 25 MG, QD
     Dates: start: 20120113
  2. VALDOXAN [Interacting]
     Dosage: 12.5 MG, QD
     Dates: start: 20120115, end: 20120118
  3. SIMVASTATIN [Concomitant]
     Indication: BLOOD CHOLESTEROL INCREASED
  4. ASPIRIN [Concomitant]
  5. VALDOXAN [Interacting]
     Dosage: 25 MG, UNK
     Dates: start: 20111227, end: 20111231
  6. TEMAZEPAM [Suspect]
     Indication: INSOMNIA
  7. RABEPRAZOLE SODIUM [Concomitant]
     Indication: GASTROOESOPHAGEAL REFLUX DISEASE

REACTIONS (10)
  - MUSCULAR WEAKNESS [None]
  - NAUSEA [None]
  - DECREASED APPETITE [None]
  - HEADACHE [None]
  - DRUG INTERACTION [None]
  - THINKING ABNORMAL [None]
  - INSOMNIA [None]
  - VERTIGO [None]
  - MORBID THOUGHTS [None]
  - GAIT DISTURBANCE [None]
